FAERS Safety Report 15719861 (Version 1)
Quarter: 2018Q4

REPORT INFORMATION
  Report Type: Spontaneous
  Country: FR (occurrence: FR)
  Receive Date: 20181213
  Receipt Date: 20181213
  Transmission Date: 20190205
  Serious: Yes (Other)
  Sender: FDA-Public Use
  Company Number: FR-PFIZER INC-2018505252

PATIENT
  Age: 51 Year
  Sex: Male
  Weight: 115 kg

DRUGS (2)
  1. DALACINE [Suspect]
     Active Substance: CLINDAMYCIN
     Indication: INFECTION
     Dosage: 900 MG, UNK
     Route: 048
     Dates: start: 20181031, end: 20181115
  2. AMOXICILLIN TRIHYDRATE [Suspect]
     Active Substance: AMOXICILLIN
     Indication: INFECTION
     Dosage: 3 G, UNK
     Route: 048
     Dates: start: 20181031, end: 20181115

REACTIONS (1)
  - Pyrexia [Recovered/Resolved]

NARRATIVE: CASE EVENT DATE: 20181110
